FAERS Safety Report 4295325-7 (Version None)
Quarter: 2004Q1

REPORT INFORMATION
  Report Type: 
  Country: None (occurrence: None)
  Receive Date: 20040216
  Receipt Date: 20030605
  Transmission Date: 20041129
  Serious: Yes (Other)
  Sender: FDA-Public Use
  Company Number: US-GLAXOSMITHKLINE-A0411248A

PATIENT
  Age: 21 Year
  Sex: Female
  Weight: 40.9 kg

DRUGS (7)
  1. LAMICTAL [Suspect]
     Indication: COMPLEX PARTIAL SEIZURES
     Dosage: 350MG PER DAY
     Route: 048
     Dates: start: 20030201
  2. AMARYL [Concomitant]
  3. LEVOXYL [Concomitant]
  4. ASPIRIN [Concomitant]
  5. VIVELLE [Concomitant]
  6. PROVERA [Concomitant]
  7. TRILEPTAL [Concomitant]

REACTIONS (2)
  - DRUG INEFFECTIVE [None]
  - GRAND MAL CONVULSION [None]
